FAERS Safety Report 20983911 (Version 4)
Quarter: 2023Q1

REPORT INFORMATION
  Report Type: Spontaneous
  Country: CZ (occurrence: CZ)
  Receive Date: 20220621
  Receipt Date: 20230120
  Transmission Date: 20230417
  Serious: Yes (Hospitalization, Other)
  Sender: FDA-Public Use
  Company Number: CZ-BRISTOL-MYERS SQUIBB COMPANY-2022-055986

PATIENT
  Age: 64 Year
  Sex: Female

DRUGS (5)
  1. OPDIVO [Suspect]
     Active Substance: NIVOLUMAB
     Indication: Renal cell carcinoma
     Dosage: DOSE : IPI 1MG/KG + NIVO 3 MG/KG;     FREQ : UNAVAILABLE
     Route: 042
     Dates: start: 20220118, end: 20220302
  2. YERVOY [Suspect]
     Active Substance: IPILIMUMAB
     Indication: Renal cell carcinoma
     Route: 042
     Dates: start: 20220118, end: 20220302
  3. LOZAP [CLOZAPINE] [Concomitant]
     Indication: Product used for unknown indication
  4. DIOSMIN\HESPERIDIN [Concomitant]
     Active Substance: DIOSMIN\HESPERIDIN
     Indication: Product used for unknown indication
  5. COVID-19 VACCINE [Concomitant]
     Indication: COVID-19
     Dosage: 2 DOSES OF COVID VACCINE

REACTIONS (5)
  - Immune-mediated myocarditis [Recovered/Resolved]
  - Malignant neoplasm progression [Unknown]
  - Malignant pleural effusion [Unknown]
  - Hyperkalaemia [Unknown]
  - Hypercalcaemia [Unknown]

NARRATIVE: CASE EVENT DATE: 20220328
